FAERS Safety Report 8137626-8 (Version None)
Quarter: 2012Q1

REPORT INFORMATION
  Report Type: 
  Country: None (occurrence: None)
  Receive Date: 20120215
  Receipt Date: 20120209
  Transmission Date: 20120608
  Serious: No
  Sender: FDA-Public Use
  Company Number: US-PFIZER INC-2012036294

PATIENT
  Sex: Female
  Weight: 69.841 kg

DRUGS (12)
  1. ATENOLOL [Concomitant]
     Indication: HYPERTENSION
     Dosage: 50 MG, DAILY
  2. OMEPRAZOLE [Concomitant]
     Indication: GASTROOESOPHAGEAL REFLUX DISEASE
     Dosage: 20 MG, DAILY
  3. ZOCOR [Concomitant]
     Indication: BLOOD CHOLESTEROL INCREASED
     Dosage: UNK
  4. CITALOPRAM [Concomitant]
     Indication: STRESS
     Dosage: 40 MG, DAILY
  5. FENOFIBRATE [Concomitant]
     Indication: BLOOD CHOLESTEROL INCREASED
     Dosage: 54 MG, DAILY
  6. SINEMET [Concomitant]
     Indication: MUSCLE SPASMS
     Dosage: 25/100 MG, DAILY
  7. FOLIC ACID [Concomitant]
     Dosage: UNK, DAILY
  8. MAGNESIUM [Concomitant]
     Dosage: UNK
  9. VITAMIN B-12 [Concomitant]
     Dosage: UNK, DAILY
  10. ACETAMINOPHEN W/ CODEINE [Concomitant]
     Indication: PAIN
     Dosage: 300/30 MG, AS NEEDED
  11. VFEND [Suspect]
     Indication: FUNGAL INFECTION
     Dosage: 200 MG, 2X/DAY
     Dates: end: 20120208
  12. SYNTHROID [Concomitant]
     Indication: THYROID DISORDER
     Dosage: 25 UG, DAILY

REACTIONS (4)
  - LIVER FUNCTION TEST ABNORMAL [None]
  - EYE DISORDER [None]
  - VISUAL IMPAIRMENT [None]
  - HEPATIC ENZYME INCREASED [None]
